FAERS Safety Report 19027306 (Version 2)
Quarter: 2021Q2

REPORT INFORMATION
  Report Type: Spontaneous
  Country: JP (occurrence: JP)
  Receive Date: 20210318
  Receipt Date: 20210401
  Transmission Date: 20210717
  Serious: Yes (Hospitalization, Other)
  Sender: FDA-Public Use
  Company Number: JP-INSUD PHARMA-2103JP00257

PATIENT

DRUGS (10)
  1. FLUOROURACIL. [Suspect]
     Active Substance: FLUOROURACIL
     Indication: COLON CANCER METASTATIC
     Dosage: UNKNOWN
     Route: 065
  2. GRANISETRON [Suspect]
     Active Substance: GRANISETRON
     Indication: PRODUCT USED FOR UNKNOWN INDICATION
     Dosage: UNKNOWN
     Route: 065
  3. OXALIPLATIN. [Suspect]
     Active Substance: OXALIPLATIN
     Indication: COLON CANCER METASTATIC
     Dosage: UNKNOWN
     Route: 065
  4. BEVACIZUMAB. [Suspect]
     Active Substance: BEVACIZUMAB
     Indication: COLON CANCER METASTATIC
     Dosage: UNKNOWN
     Route: 065
  5. RAMOSETRON [Suspect]
     Active Substance: RAMOSETRON HYDROCHLORIDE
     Indication: PRODUCT USED FOR UNKNOWN INDICATION
     Dosage: UNKNOWN
     Route: 065
  6. CEFOPERAZONE + SULBACTAM [Suspect]
     Active Substance: CEFOPERAZONE SODIUM\SULBACTAM
     Indication: PRODUCT USED FOR UNKNOWN INDICATION
     Dosage: UNKNOWN
     Route: 065
  7. IRINOTECAN [Suspect]
     Active Substance: IRINOTECAN
     Indication: COLON CANCER METASTATIC
     Dosage: UNKNOWN
     Route: 065
  8. PANITUMUMAB [Suspect]
     Active Substance: PANITUMUMAB
     Indication: COLON CANCER METASTATIC
     Dosage: UNKNOWN
     Route: 065
  9. OMEPRAZOLE. [Suspect]
     Active Substance: OMEPRAZOLE
     Indication: PRODUCT USED FOR UNKNOWN INDICATION
     Dosage: UNKNOWN
     Route: 065
  10. FOLINIC ACID [Suspect]
     Active Substance: LEUCOVORIN
     Indication: COLON CANCER METASTATIC
     Dosage: UNKNOWN
     Route: 065

REACTIONS (10)
  - Malaise [Recovering/Resolving]
  - Weight increased [Unknown]
  - Decreased appetite [Recovering/Resolving]
  - Hepatic steatosis [Recovered/Resolved]
  - Ascites [Recovered/Resolved]
  - Hepatic function abnormal [Recovering/Resolving]
  - Drug-induced liver injury [Recovered/Resolved]
  - Hepatic failure [Recovered/Resolved]
  - Abdominal distension [Unknown]
  - Hypoalbuminaemia [Recovering/Resolving]
